FAERS Safety Report 5012021-9 (Version None)
Quarter: 2006Q2

REPORT INFORMATION
  Report Type: 
  Country: None (occurrence: None)
  Receive Date: 20060524
  Receipt Date: 20060510
  Transmission Date: 20061013
  Serious: Yes (Hospitalization)
  Sender: FDA-Public Use
  Company Number: 2006-BP-05359RO

PATIENT
  Age: 66 Year
  Sex: Female

DRUGS (6)
  1. CYCLOPHOSPHAMIDE [Suspect]
     Indication: ANAEMIA HAEMOLYTIC AUTOIMMUNE
     Dosage: 100 MG/DAY, PO
     Route: 048
  2. ROXITHROMYCIN (ROXITHROMYCIN) [Suspect]
  3. INSULIN [Concomitant]
  4. ENALAPRIL MALEATE [Concomitant]
  5. ORAL ANTICOAGULANT WITH PHENPROCOUMON [Concomitant]
  6. PREDNISONE TAB [Concomitant]

REACTIONS (13)
  - ALANINE AMINOTRANSFERASE INCREASED [None]
  - ASCITES [None]
  - ASPARTATE AMINOTRANSFERASE INCREASED [None]
  - BLOOD ALBUMIN INCREASED [None]
  - BLOOD ALKALINE PHOSPHATASE INCREASED [None]
  - COAGULATION FACTOR V LEVEL DECREASED [None]
  - GALLBLADDER DISORDER [None]
  - GAMMA-GLUTAMYLTRANSFERASE INCREASED [None]
  - HAEMOLYSIS [None]
  - HEPATIC NECROSIS [None]
  - HEPATOMEGALY [None]
  - TRANSAMINASES INCREASED [None]
  - VENOOCCLUSIVE LIVER DISEASE [None]
